FAERS Safety Report 11142059 (Version 1)
Quarter: 2015Q2

REPORT INFORMATION
  Report Type: Spontaneous
  Country: CN (occurrence: CN)
  Receive Date: 20150527
  Receipt Date: 20150527
  Transmission Date: 20150821
  Serious: Yes (Other)
  Sender: FDA-Public Use
  Company Number: CN-ABBVIE-15P-035-1398000-00

PATIENT
  Age: 13 Year
  Sex: Male

DRUGS (1)
  1. DEPAKINE CHRONO [Suspect]
     Active Substance: VALPROATE SODIUM
     Indication: EPILEPSY
     Dosage: EXTENDED RELEASE
     Route: 048
     Dates: start: 20150519

REACTIONS (8)
  - Eye disorder [Recovered/Resolved]
  - Asthenia [Unknown]
  - Seizure [Recovered/Resolved]
  - Musculoskeletal stiffness [Recovered/Resolved]
  - Epilepsy [Recovered/Resolved]
  - Salivary hypersecretion [Recovered/Resolved]
  - Somnolence [Unknown]
  - Dry mouth [Recovered/Resolved]

NARRATIVE: CASE EVENT DATE: 20150519
